FAERS Safety Report 15948411 (Version 2)
Quarter: 2019Q1

REPORT INFORMATION
  Report Type: Spontaneous
  Country: PT (occurrence: PT)
  Receive Date: 20190211
  Receipt Date: 20190211
  Transmission Date: 20190417
  Serious: Yes (Other)
  Sender: FDA-Public Use
  Company Number: PT-ROCHE-2259895

PATIENT
  Sex: Male

DRUGS (1)
  1. XOLAIR [Suspect]
     Active Substance: OMALIZUMAB
     Indication: PRODUCT USED FOR UNKNOWN INDICATION
     Dosage: 450 MG, (150 MG IN EACH LIMB UNDERGOING A 450 MG 4/4 WEEKS DOSE)
     Route: 065
     Dates: start: 201810

REACTIONS (4)
  - Papule [Recovering/Resolving]
  - Purpura [Recovering/Resolving]
  - Hypersensitivity [Recovering/Resolving]
  - Product quality issue [Unknown]
